FAERS Safety Report 8248452-3 (Version None)
Quarter: 2012Q1

REPORT INFORMATION
  Report Type: 
  Country: None (occurrence: None)
  Receive Date: 20120330
  Receipt Date: 20120322
  Transmission Date: 20120608
  Serious: Yes (Hospitalization, Other)
  Sender: FDA-Public Use
  Company Number: US-ELI_LILLY_AND_COMPANY-US201109002074

PATIENT
  Sex: Male

DRUGS (12)
  1. CALCIUM CARBONATE [Concomitant]
  2. LIPITOR [Concomitant]
  3. ASPIRIN [Concomitant]
  4. FORTEO [Suspect]
     Dosage: 20 UG, QD
     Route: 065
  5. FORTEO [Suspect]
     Indication: OSTEOPOROSIS
     Dosage: 20 UG, QD
     Dates: start: 20110801
  6. FORTEO [Suspect]
     Dosage: 20 UG, QD
     Route: 065
  7. ACCUPRIL [Concomitant]
     Indication: BLOOD PRESSURE
  8. CO Q-10 [Concomitant]
  9. OXYGEN [Concomitant]
  10. ALLOPURINOL [Concomitant]
     Indication: GOUT
  11. VITAMIN D [Concomitant]
  12. VITAMIN TAB [Concomitant]
     Dosage: UNK, QD

REACTIONS (7)
  - PARAESTHESIA [None]
  - ABASIA [None]
  - BLOOD URINE PRESENT [None]
  - GAIT DISTURBANCE [None]
  - BLADDER CANCER [None]
  - PNEUMONIA [None]
  - DIARRHOEA [None]
